FAERS Safety Report 18458292 (Version 1)
Quarter: 2020Q4

REPORT INFORMATION
  Report Type: Spontaneous
  Country: US (occurrence: US)
  Receive Date: 20201103
  Receipt Date: 20201103
  Transmission Date: 20210114
  Serious: Yes (Hospitalization, Other)
  Sender: FDA-Public Use
  Company Number: US-009507513-2010USA010880

PATIENT
  Age: 62 Year
  Sex: Female

DRUGS (1)
  1. PRINIVIL [Suspect]
     Active Substance: LISINOPRIL
     Indication: BLOOD PRESSURE MEASUREMENT
     Dosage: UNK
     Route: 065
     Dates: start: 20190709, end: 20190714

REACTIONS (6)
  - Anaphylactic reaction [Unknown]
  - Swollen tongue [Unknown]
  - Coma [Recovered/Resolved]
  - Injury [Unknown]
  - Swelling face [Unknown]
  - Stress [Unknown]

NARRATIVE: CASE EVENT DATE: 2019
